FAERS Safety Report 13659562 (Version 2)
Quarter: 2017Q2

REPORT INFORMATION
  Report Type: Report from Study
  Country: CR (occurrence: CR)
  Receive Date: 20170616
  Receipt Date: 20170622
  Transmission Date: 20170830
  Serious: Yes (Death, Hospitalization, Disabling, Other)
  Sender: FDA-Public Use
  Company Number: PHHY2017CR068494

PATIENT
  Age: 54 Year
  Sex: Male
  Weight: 80 kg

DRUGS (2)
  1. TRAMETINIB [Suspect]
     Active Substance: TRAMETINIB
     Indication: METASTATIC MALIGNANT MELANOMA
     Dosage: UNK
     Route: 048
  2. DABRAFENIB [Suspect]
     Active Substance: DABRAFENIB
     Indication: METASTATIC MALIGNANT MELANOMA
     Dosage: 150 MG, BID
     Route: 048
     Dates: start: 20160806, end: 20170503

REACTIONS (6)
  - Malignant neoplasm progression [Unknown]
  - Cerebral haemorrhage [Recovered/Resolved with Sequelae]
  - Metastases to central nervous system [Unknown]
  - Hemiparesis [Recovered/Resolved with Sequelae]
  - Death [Fatal]
  - Central nervous system haemorrhage [Unknown]

NARRATIVE: CASE EVENT DATE: 20170503
